FAERS Safety Report 12929991 (Version 1)
Quarter: 2016Q4

REPORT INFORMATION
  Report Type: Spontaneous
  Country: US (occurrence: US)
  Receive Date: 20161110
  Receipt Date: 20161110
  Transmission Date: 20170207
  Serious: Yes (Hospitalization)
  Sender: FDA-Public Use
  Company Number: US-UNITED THERAPEUTICS-UNT-2016-015580

PATIENT
  Age: 68 Year
  Sex: Male
  Weight: 80.27 kg

DRUGS (1)
  1. TYVASO [Suspect]
     Active Substance: TREPROSTINIL
     Indication: PULMONARY HYPERTENSION
     Dosage: 18-54 MICROGRAMS, QID
     Dates: start: 20160927

REACTIONS (9)
  - Malaise [Unknown]
  - Dental caries [Unknown]
  - Abasia [Unknown]
  - Dyspnoea [Not Recovered/Not Resolved]
  - Tooth infection [Unknown]
  - Delusion [Unknown]
  - Drug ineffective [Unknown]
  - Syncope [Unknown]
  - Chest pain [Recovered/Resolved]

NARRATIVE: CASE EVENT DATE: 2016
